FAERS Safety Report 17390289 (Version 1)
Quarter: 2020Q1

REPORT INFORMATION
  Report Type: Spontaneous
  Country: FR (occurrence: FR)
  Receive Date: 20200207
  Receipt Date: 20200207
  Transmission Date: 20200409
  Serious: Yes (Other)
  Sender: FDA-Public Use
  Company Number: FR-ASTRAZENECA-2020SE18193

PATIENT
  Age: 772 Month
  Sex: Female
  Weight: 70.3 kg

DRUGS (3)
  1. INEXIUM [Suspect]
     Active Substance: ESOMEPRAZOLE
     Indication: NEOPLASM MALIGNANT
     Route: 048
     Dates: start: 2010, end: 20191220
  2. INEXIUM [Suspect]
     Active Substance: ESOMEPRAZOLE
     Indication: NEOPLASM MALIGNANT
     Route: 048
     Dates: start: 20200128
  3. INEXIUM [Suspect]
     Active Substance: ESOMEPRAZOLE
     Indication: NEOPLASM MALIGNANT
     Route: 048
     Dates: start: 20200120, end: 20200127

REACTIONS (14)
  - Gastrointestinal candidiasis [Unknown]
  - Gastritis [Unknown]
  - Faeces discoloured [Unknown]
  - Chapped lips [Unknown]
  - Fluid intake reduced [Unknown]
  - Polyp [Unknown]
  - Hiatus hernia [Unknown]
  - Dehydration [Unknown]
  - Pallor [Unknown]
  - Hypophagia [Unknown]
  - Dry mouth [Unknown]
  - Tinnitus [Unknown]
  - Pain [Unknown]
  - Weight decreased [Unknown]

NARRATIVE: CASE EVENT DATE: 201804
